FAERS Safety Report 8309514-5 (Version None)
Quarter: 2012Q2

REPORT INFORMATION
  Report Type: 
  Country: None (occurrence: None)
  Receive Date: 20120425
  Receipt Date: 20120420
  Transmission Date: 20120825
  Serious: No
  Sender: FDA-Public Use
  Company Number: US-PFIZER INC-2012098611

PATIENT
  Sex: Male
  Weight: 28 kg

DRUGS (2)
  1. MACRODANTIN [Concomitant]
     Indication: HYDRONEPHROSIS
     Dosage: 50 MG, DAILY
     Route: 048
  2. GENOTROPIN [Suspect]
     Indication: HORMONE REPLACEMENT THERAPY
     Dosage: 1 MG, DAILY
     Dates: start: 20120101

REACTIONS (1)
  - INJECTION SITE PAIN [None]
